FAERS Safety Report 12839261 (Version 1)
Quarter: 2016Q4

REPORT INFORMATION
  Report Type: Spontaneous
  Country: US (occurrence: US)
  Receive Date: 20161010
  Receipt Date: 20161010
  Transmission Date: 20170207
  Serious: Yes (Other)
  Sender: FDA-Public Use
  Company Number: None

PATIENT
  Sex: Female

DRUGS (1)
  1. ATROPINE. [Suspect]
     Active Substance: ATROPINE
     Indication: HOSPICE CARE
     Route: 048

REACTIONS (3)
  - Device issue [None]
  - Device defective [None]
  - Incorrect dose administered [None]

NARRATIVE: CASE EVENT DATE: 20160923
